FAERS Safety Report 4948637-5 (Version None)
Quarter: 2006Q1

REPORT INFORMATION
  Report Type: 
  Country: None (occurrence: None)
  Receive Date: 20060201
  Receipt Date: 20051121
  Transmission Date: 20060701
  Serious: No
  Sender: FDA-Public Use
  Company Number: 2005PV004632

PATIENT
  Age: 60 Year
  Sex: Female
  Weight: 58.9676 kg

DRUGS (4)
  1. BYETTA [Suspect]
     Indication: DIABETES MELLITUS NON-INSULIN-DEPENDENT
     Dosage: 5 MCG;BID;SC
     Route: 058
     Dates: start: 20051117, end: 20051120
  2. GLUCOPHAGE [Concomitant]
  3. AVANDIA [Concomitant]
  4. AMARYL [Concomitant]

REACTIONS (6)
  - APATHY [None]
  - DECREASED APPETITE [None]
  - FEELING ABNORMAL [None]
  - FOOD AVERSION [None]
  - NAUSEA [None]
  - WEIGHT DECREASED [None]
